FAERS Safety Report 14955401 (Version 1)
Quarter: 2018Q2

REPORT INFORMATION
  Report Type: Spontaneous
  Country: US (occurrence: US)
  Receive Date: 20180531
  Receipt Date: 20180531
  Transmission Date: 20180711
  Serious: No
  Sender: FDA-Public Use
  Company Number: US-ZYDUS-017038

PATIENT
  Age: 23 Year
  Sex: Male

DRUGS (3)
  1. TAMSULOSIN/TAMSULOSIN HYDROCHLORIDE [Concomitant]
     Indication: URINARY RETENTION
  2. VENLAFAXINE/VENLAFAXINE HYDROCHLORIDE [Suspect]
     Active Substance: VENLAFAXINE HYDROCHLORIDE
     Indication: DEPRESSION
     Route: 048
     Dates: start: 201707, end: 20170927
  3. VENLAFAXINE/VENLAFAXINE HYDROCHLORIDE [Suspect]
     Active Substance: VENLAFAXINE HYDROCHLORIDE
     Indication: DEPRESSION
     Dosage: START DATE: 27-SEP-2017
     Route: 048

REACTIONS (4)
  - Hyperhidrosis [Recovered/Resolved]
  - Sexual dysfunction [Recovered/Resolved]
  - Urinary retention [Recovered/Resolved]
  - Drug ineffective [Not Recovered/Not Resolved]

NARRATIVE: CASE EVENT DATE: 201707
